FAERS Safety Report 5999554-3 (Version None)
Quarter: 2008Q4

REPORT INFORMATION
  Report Type: 
  Country: None (occurrence: None)
  Receive Date: 20081211
  Receipt Date: 20081211
  Transmission Date: 20090506
  Serious: Yes (Other)
  Sender: FDA-Public Use
  Company Number: None

PATIENT
  Age: 71 Year
  Sex: Female
  Weight: 74.8435 kg

DRUGS (2)
  1. LEVAQUIN [Suspect]
     Indication: PNEUMONIA
     Dosage: IV INJECTION (HOSPITAL) 2 DAILY BY MOUTH
     Route: 048
     Dates: start: 20080615, end: 20080622
  2. STEROIDS [Suspect]
     Indication: NEURITIS
     Dates: start: 20080818, end: 20080825

REACTIONS (5)
  - BONE PAIN [None]
  - CRYING [None]
  - MYALGIA [None]
  - PAIN IN EXTREMITY [None]
  - PNEUMONIA [None]
